FAERS Safety Report 4665848-7 (Version None)
Quarter: 2005Q2

REPORT INFORMATION
  Report Type: 
  Country: None (occurrence: None)
  Receive Date: 20050519
  Receipt Date: 20050413
  Transmission Date: 20051028
  Serious: No
  Sender: FDA-Public Use
  Company Number: US-GLAXOSMITHKLINE-A0554000A

PATIENT
  Age: 67 Year
  Sex: Male

DRUGS (2)
  1. AVODART [Suspect]
     Indication: BENIGN PROSTATIC HYPERPLASIA
     Dosage: .5MG PER DAY
     Route: 048
     Dates: start: 20040101, end: 20041226
  2. FLOMAX [Concomitant]

REACTIONS (8)
  - BREAST PAIN [None]
  - BREAST TENDERNESS [None]
  - DANDRUFF [None]
  - ERYTHEMA [None]
  - HYPERTROPHY BREAST [None]
  - HYPOTRICHOSIS [None]
  - PROSTATIC PAIN [None]
  - RASH [None]
